FAERS Safety Report 9430453 (Version 1)
Quarter: 2013Q3

REPORT INFORMATION
  Report Type: Spontaneous
  Country: GB (occurrence: GB)
  Receive Date: 20130730
  Receipt Date: 20130730
  Transmission Date: 20140515
  Serious: Yes (Other)
  Sender: FDA-Public Use
  Company Number: GB-GLAXOSMITHKLINE-B0911038A

PATIENT
  Age: 49 Year
  Sex: Female
  Weight: 82.55 kg

DRUGS (3)
  1. SERETIDE [Suspect]
     Indication: ASTHMA
     Route: 055
     Dates: end: 20130714
  2. VENTOLIN [Concomitant]
  3. LORATADINE [Concomitant]

REACTIONS (4)
  - Heart rate increased [Recovered/Resolved]
  - Asthma [Unknown]
  - Product taste abnormal [Unknown]
  - Device issue [Unknown]
